FAERS Safety Report 5308810-3 (Version None)
Quarter: 2007Q2

REPORT INFORMATION
  Report Type: 
  Country: None (occurrence: None)
  Receive Date: 20070426
  Receipt Date: 20070417
  Transmission Date: 20071010
  Serious: Yes (Other)
  Sender: FDA-Public Use
  Company Number: US-PFIZER INC-2004090817

PATIENT
  Sex: Female

DRUGS (5)
  1. CELEBREX [Suspect]
     Indication: OSTEOARTHRITIS
     Route: 048
  2. CHEMOTHERAPY NOS [Suspect]
     Indication: MYCOSIS FUNGOIDES
  3. CHEMOTHERAPY NOS [Suspect]
     Indication: NON-HODGKIN'S LYMPHOMA
  4. NEULASTA [Suspect]
     Indication: WHITE BLOOD CELL COUNT DECREASED
  5. NEUPOGEN [Suspect]
     Indication: WHITE BLOOD CELL COUNT DECREASED

REACTIONS (15)
  - BLADDER OPERATION [None]
  - CEREBROVASCULAR ACCIDENT [None]
  - CYSTITIS [None]
  - DERMATITIS ACNEIFORM [None]
  - ECZEMA [None]
  - FATIGUE [None]
  - MEMORY IMPAIRMENT [None]
  - MYCOSIS FUNGOIDES [None]
  - PAIN IN EXTREMITY [None]
  - POLLAKIURIA [None]
  - ROSACEA [None]
  - SEBORRHOEA [None]
  - SKIN LESION [None]
  - SPEECH DISORDER [None]
  - WHITE BLOOD CELL COUNT DECREASED [None]
